FAERS Safety Report 8058178-7 (Version None)
Quarter: 2012Q1

REPORT INFORMATION
  Report Type: 
  Country: None (occurrence: None)
  Receive Date: 20120120
  Receipt Date: 20120105
  Transmission Date: 20120608
  Serious: Yes (Other)
  Sender: FDA-Public Use
  Company Number: CA-JNJFOC-20120107486

PATIENT
  Age: 61 Year
  Sex: Female

DRUGS (2)
  1. NONSTEROIDAL ANTI-INFLAMMATORY DRUG NOS [Concomitant]
     Route: 065
  2. DITROPAN XL [Suspect]
     Indication: PRODUCT USED FOR UNKNOWN INDICATION
     Route: 065

REACTIONS (1)
  - OCULAR RETROBULBAR HAEMORRHAGE [None]
